FAERS Safety Report 5755446-6 (Version None)
Quarter: 2008Q2

REPORT INFORMATION
  Report Type: 
  Country: None (occurrence: None)
  Receive Date: 20080602
  Receipt Date: 20080528
  Transmission Date: 20081010
  Serious: Yes (Hospitalization, Other)
  Sender: FDA-Public Use
  Company Number: US-ASTRAZENECA-2007UW02356

PATIENT
  Age: 18635 Day
  Sex: Male
  Weight: 106.8 kg

DRUGS (9)
  1. SEROQUEL [Suspect]
     Indication: POST-TRAUMATIC STRESS DISORDER
     Route: 048
     Dates: start: 20030317, end: 20040903
  2. SEROQUEL [Suspect]
     Indication: HALLUCINATION
     Route: 048
     Dates: start: 20030317, end: 20040903
  3. SEROQUEL [Suspect]
     Indication: SLEEP DISORDER
     Route: 048
     Dates: start: 20030317, end: 20040903
  4. SEROQUEL [Suspect]
     Route: 048
     Dates: start: 20040101, end: 20060301
  5. SEROQUEL [Suspect]
     Route: 048
     Dates: start: 20040101, end: 20060301
  6. SEROQUEL [Suspect]
     Route: 048
     Dates: start: 20040101, end: 20060301
  7. SEROQUEL [Suspect]
     Route: 048
     Dates: start: 20060327, end: 20060629
  8. SEROQUEL [Suspect]
     Route: 048
     Dates: start: 20060327, end: 20060629
  9. SEROQUEL [Suspect]
     Route: 048
     Dates: start: 20060327, end: 20060629

REACTIONS (5)
  - DELIRIUM [None]
  - KNEE ARTHROPLASTY [None]
  - OVERDOSE [None]
  - TYPE 2 DIABETES MELLITUS [None]
  - WEIGHT INCREASED [None]
